FAERS Safety Report 4849170-1 (Version None)
Quarter: 2005Q4

REPORT INFORMATION
  Report Type: 
  Country: None (occurrence: None)
  Receive Date: 20051209
  Receipt Date: 20051006
  Transmission Date: 20060501
  Serious: Yes (Hospitalization)
  Sender: FDA-Public Use
  Company Number: US-MERCK-0510USA06226

PATIENT
  Age: 45 Year
  Sex: Male
  Weight: 98 kg

DRUGS (2)
  1. VIOXX [Suspect]
     Indication: ARTHRALGIA
     Route: 048
     Dates: start: 20010101, end: 20020101
  2. VIOXX [Suspect]
     Indication: ARTHRITIS
     Route: 048
     Dates: start: 20010101, end: 20020101

REACTIONS (4)
  - ACUTE MYOCARDIAL INFARCTION [None]
  - CHEST PAIN [None]
  - HYPERTENSION [None]
  - PATELLOFEMORAL PAIN SYNDROME [None]
